FAERS Safety Report 6669426-X (Version None)
Quarter: 2010Q2

REPORT INFORMATION
  Report Type: 
  Country: None (occurrence: None)
  Receive Date: 20100402
  Receipt Date: 20100329
  Transmission Date: 20101027
  Serious: Yes (Congenital Anomaly)
  Sender: FDA-Public Use
  Company Number: 1000012796

PATIENT
  Sex: Male
  Weight: 3.1434 kg

DRUGS (7)
  1. LEXAPRO [Suspect]
     Dosage: TRANSPLACENTAL
     Route: 064
  2. PROVIGIL [Suspect]
     Dosage: 200 MG (200 MG, 1 IN 1 D), TRANSPLACENTAL
     Route: 064
     Dates: start: 20080101
  3. LEVOTHYROXINE [Suspect]
     Dosage: TRANSPLACENTAL
     Route: 064
  4. METFORMIN HCL [Suspect]
     Dosage: TRANSPLACENTAL
     Route: 064
  5. BUSPAR [Suspect]
     Dosage: TRANSPLACENTAL
     Route: 064
  6. NASONEX [Suspect]
     Dosage: TRANSPLACENTAL
     Route: 064
  7. OB NATAL [Suspect]
     Dosage: TRANSPLACENTAL
     Route: 064

REACTIONS (5)
  - CYANOSIS NEONATAL [None]
  - MATERNAL DRUGS AFFECTING FOETUS [None]
  - PREMATURE BABY [None]
  - TRANSPOSITION OF THE GREAT VESSELS [None]
  - VENTRICULAR SEPTAL DEFECT [None]
